FAERS Safety Report 8356396-1 (Version None)
Quarter: 2012Q2

REPORT INFORMATION
  Report Type: 
  Country: None (occurrence: None)
  Receive Date: 20120514
  Receipt Date: 20120510
  Transmission Date: 20120825
  Serious: Yes (Death)
  Sender: FDA-Public Use
  Company Number: JP-PFIZER INC-2012113796

PATIENT
  Age: 81 Year
  Sex: Male

DRUGS (4)
  1. LYRICA [Suspect]
     Dosage: 150 MG, 1X/DAY
     Route: 048
     Dates: start: 20120201
  2. HALCION [Concomitant]
     Dosage: UNK
     Dates: start: 20120201, end: 20120301
  3. DEPAS [Concomitant]
     Dosage: UNK
     Dates: start: 20120201, end: 20120301
  4. VITAMIN B12 [Concomitant]
     Dosage: UNK
     Dates: start: 20120201, end: 20120301

REACTIONS (1)
  - DEATH [None]
